FAERS Safety Report 10200421 (Version 1)
Quarter: 2014Q2

REPORT INFORMATION
  Report Type: Spontaneous
  Country: US (occurrence: US)
  Receive Date: 20140528
  Receipt Date: 20140528
  Transmission Date: 20141212
  Serious: No
  Sender: FDA-Public Use
  Company Number: US-009507513-1405USA006768

PATIENT
  Sex: 0
  Weight: 149.21 kg

DRUGS (1)
  1. IMPLANON [Suspect]
     Indication: CONTRACEPTION
     Dosage: UNK
     Route: 059
     Dates: start: 20111121

REACTIONS (4)
  - Device breakage [Not Recovered/Not Resolved]
  - Complication of device removal [Not Recovered/Not Resolved]
  - Medical device complication [Not Recovered/Not Resolved]
  - No adverse event [Unknown]
